FAERS Safety Report 5808990-7 (Version None)
Quarter: 2008Q3

REPORT INFORMATION
  Report Type: 
  Country: None (occurrence: None)
  Receive Date: 20080714
  Receipt Date: 20080707
  Transmission Date: 20090109
  Serious: Yes (Hospitalization, Other)
  Sender: FDA-Public Use
  Company Number: US-JNJFOC-20080406930

PATIENT
  Sex: Female
  Weight: 90.27 kg

DRUGS (4)
  1. LEVAQUIN [Suspect]
     Indication: BRONCHITIS
     Route: 048
  2. VITAMIN TAB [Concomitant]
     Route: 065
  3. TUSSIONEX [Concomitant]
     Indication: COUGH
     Route: 048
  4. TUSSIONEX [Concomitant]
     Indication: BRONCHITIS
     Route: 048

REACTIONS (6)
  - ARTHRALGIA [None]
  - HYPOKINESIA [None]
  - NAUSEA [None]
  - SPINAL COLUMN STENOSIS [None]
  - SPINAL OSTEOARTHRITIS [None]
  - TREMOR [None]
